FAERS Safety Report 7805891-X (Version None)
Quarter: 2011Q4

REPORT INFORMATION
  Report Type: 
  Country: None (occurrence: None)
  Receive Date: 20111011
  Receipt Date: 20111010
  Transmission Date: 20120403
  Serious: No
  Sender: FDA-Public Use
  Company Number: US-BIOGENIDEC-2011BI038549

PATIENT
  Age: 76 Year
  Sex: Female

DRUGS (3)
  1. TYSABRI [Suspect]
     Indication: MULTIPLE SCLEROSIS
     Route: 042
     Dates: start: 20110922
  2. TYSABRI [Suspect]
     Route: 042
     Dates: start: 20061102, end: 20070605
  3. TYSABRI [Suspect]
     Route: 042
     Dates: start: 20100713, end: 20101007

REACTIONS (1)
  - ASTHENIA [None]
